FAERS Safety Report 8095025-1 (Version None)
Quarter: 2012Q1

REPORT INFORMATION
  Report Type: 
  Country: None (occurrence: None)
  Receive Date: 20120131
  Receipt Date: 20120131
  Transmission Date: 20120608
  Serious: Yes (Hospitalization)
  Sender: FDA-Public Use
  Company Number: None

PATIENT
  Age: 51 Year
  Sex: Male
  Weight: 232.69 kg

DRUGS (1)
  1. VELCADE [Suspect]
     Indication: MULTIPLE MYELOMA
     Dosage: 3.5MG
     Route: 040
     Dates: start: 20110329, end: 20111213

REACTIONS (3)
  - BLOOD PRESSURE INCREASED [None]
  - HYPERHIDROSIS [None]
  - DIZZINESS [None]
